FAERS Safety Report 6431749-7 (Version None)
Quarter: 2009Q4

REPORT INFORMATION
  Report Type: 
  Country: None (occurrence: None)
  Receive Date: 20091104
  Receipt Date: 20091021
  Transmission Date: 20100525
  Serious: Yes (Other)
  Sender: FDA-Public Use
  Company Number: AXC-2009-000060

PATIENT
  Sex: Female

DRUGS (6)
  1. CARAFATE [Suspect]
     Indication: OESOPHAGEAL ULCER
     Dosage: 1 G, BID, ORAL
     Route: 048
     Dates: start: 20090401
  2. KAPIDEX [Concomitant]
  3. CYCLOVIR (ACICLOVIR) [Concomitant]
  4. MULTI-VITAMINS [Concomitant]
  5. UNSPECIFIED DRUG FOR WEIGHT LOSS [Concomitant]
  6. ZANTAC (RANITIIDINE) [Concomitant]

REACTIONS (2)
  - NEUROMA [None]
  - NO THERAPEUTIC RESPONSE [None]
